FAERS Safety Report 23284091 (Version 1)
Quarter: 2023Q4

REPORT INFORMATION
  Report Type: Spontaneous
  Country: FR (occurrence: FR)
  Receive Date: 20231211
  Receipt Date: 20231211
  Transmission Date: 20240109
  Serious: Yes (Other)
  Sender: FDA-Public Use
  Company Number: None

PATIENT
  Age: 37 Year
  Sex: Female

DRUGS (2)
  1. SODIUM CHLORIDE [Suspect]
     Active Substance: SODIUM CHLORIDE
     Indication: Catheter management
     Route: 042
     Dates: start: 20231116, end: 20231116
  2. FERINJECT [Suspect]
     Active Substance: FERRIC CARBOXYMALTOSE
     Indication: Anaemia
     Dosage: ROA: IV
     Dates: start: 20231116, end: 20231116

REACTIONS (2)
  - Pigmentation disorder [Not Recovered/Not Resolved]
  - Infusion site oedema [Recovered/Resolved]

NARRATIVE: CASE EVENT DATE: 20231116
